FAERS Safety Report 8765888 (Version 1)
Quarter: 2012Q4

REPORT INFORMATION
  Report Type: 
  Country: US (occurrence: US)
  Receive Date: 20120904
  Receipt Date: 20120904
  Transmission Date: 20130627
  Serious: No
  Sender: FDA-Public Use
  Company Number: US-009507513-1209USA000356

PATIENT

DRUGS (9)
  1. PEG-INTRON [Suspect]
     Indication: HEPATITIS C
     Dosage: 120mcg per 0.5 ml, qw
     Route: 058
     Dates: start: 20120523
  2. RIBASPHERE [Suspect]
     Dosage: 600 mg in the morning and 400 mg in the evening
  3. METFORMIN [Concomitant]
     Dosage: 500 UNK, UNK
  4. VITAMINS (UNSPECIFIED) [Concomitant]
     Dosage: UNK, qd
  5. CALCIUM (UNSPECIFIED) [Concomitant]
     Dosage: 500 mg, qd
  6. ASPIRIN [Concomitant]
     Dosage: 81 mg, qd
  7. OMEGA-3 MARINE TRIGLYCERIDES [Concomitant]
     Dosage: 1000 mg, qd
  8. CYANOCOBALAMIN [Concomitant]
     Dosage: 100 Microgram, qd
  9. VITAMIN E [Concomitant]
     Dosage: 400 unit daily

REACTIONS (6)
  - Insomnia [Not Recovered/Not Resolved]
  - Blister [Not Recovered/Not Resolved]
  - Rash pustular [Not Recovered/Not Resolved]
  - Rash [Not Recovered/Not Resolved]
  - Urticaria [Not Recovered/Not Resolved]
  - Pruritus [Not Recovered/Not Resolved]
